FAERS Safety Report 4296571-9 (Version None)
Quarter: 2004Q1

REPORT INFORMATION
  Report Type: 
  Country: None (occurrence: None)
  Receive Date: 20040217
  Receipt Date: 20040211
  Transmission Date: 20041129
  Serious: Yes (Other)
  Sender: FDA-Public Use
  Company Number: US-GLAXOSMITHKLINE-A0497808A

PATIENT
  Age: 58 Year
  Sex: Male

DRUGS (12)
  1. REQUIP [Suspect]
     Indication: PARKINSON'S DISEASE
     Dosage: 3MG THREE TIMES PER DAY
     Route: 048
     Dates: start: 20041001
  2. PRIMIDONE [Concomitant]
  3. COZAAR [Concomitant]
  4. NEURONTIN [Concomitant]
  5. DOXAZOSIN MESYLATE [Concomitant]
  6. TOPROL-XL [Concomitant]
  7. PREVACID [Concomitant]
  8. ASPIRIN [Concomitant]
  9. MULTIVITAMIN [Concomitant]
  10. SAW PALMETTO [Concomitant]
  11. VELOSULIN [Concomitant]
  12. INSULIN [Concomitant]

REACTIONS (3)
  - PALPITATIONS [None]
  - SOMNOLENCE [None]
  - TACHYCARDIA [None]
